FAERS Safety Report 4914398-9 (Version None)
Quarter: 2006Q1

REPORT INFORMATION
  Report Type: 
  Country: None (occurrence: None)
  Receive Date: 20060113
  Receipt Date: 20051101
  Transmission Date: 20060701
  Serious: No
  Sender: FDA-Public Use
  Company Number: 2005SP001807

PATIENT
  Age: 62 Year
  Sex: Female
  Weight: 60.3284 kg

DRUGS (14)
  1. LUNESTA [Suspect]
     Dosage: 2 MG;HS;ORAL
     Route: 048
     Dates: start: 20050609, end: 20050601
  2. LUNESTA [Suspect]
     Dosage: 1 MG;HS;ORAL ; 3 MG;HS;ORAL
     Route: 048
     Dates: start: 20050601, end: 20050629
  3. LUNESTA [Suspect]
     Dosage: 1 MG;HS;ORAL ; 3 MG;HS;ORAL
     Route: 048
     Dates: start: 20050630, end: 20050808
  4. SYNTHROID [Concomitant]
  5. ENTERIC ASPIRIN [Concomitant]
  6. ATORVASTATIN CALCIUM [Concomitant]
  7. CLONAZEPAM [Concomitant]
  8. FOSAMAX [Concomitant]
  9. LISINOPRIL [Concomitant]
  10. ALLEGRA [Concomitant]
  11. NASONEX [Concomitant]
  12. VITAMINS NOS [Concomitant]
  13. ZOLOFT [Concomitant]
  14. CALCIUM CARBONATE [Concomitant]

REACTIONS (4)
  - DRUG INEFFECTIVE [None]
  - DRY MOUTH [None]
  - DYSGEUSIA [None]
  - MIDDLE INSOMNIA [None]
